FAERS Safety Report 4984375-0 (Version None)
Quarter: 2006Q2

REPORT INFORMATION
  Report Type: 
  Country: None (occurrence: None)
  Receive Date: 20060427
  Receipt Date: 20060420
  Transmission Date: 20061013
  Serious: Yes (Disabling)
  Sender: FDA-Public Use
  Company Number: 2006AC00774

PATIENT
  Age: 25390 Day
  Sex: Male
  Weight: 68 kg

DRUGS (7)
  1. IRESSA [Suspect]
     Indication: NON-SMALL CELL LUNG CANCER
     Route: 048
     Dates: start: 20060313, end: 20060330
  2. ADALAT [Concomitant]
  3. FUROSEMIDE [Concomitant]
  4. PANTOZOL [Concomitant]
  5. VENTOLIN DISKUS [Concomitant]
     Dosage: 200 UG FOUR TIMES A DAY
  6. METOPROLOL [Concomitant]
  7. ACENOCOUMAROL [Concomitant]

REACTIONS (1)
  - DERMATITIS ACNEIFORM [None]
